FAERS Safety Report 8250462-7 (Version None)
Quarter: 2012Q2

REPORT INFORMATION
  Report Type: 
  Country: None (occurrence: None)
  Receive Date: 20120402
  Receipt Date: 20120402
  Transmission Date: 20120825
  Serious: Yes (Hospitalization, Other)
  Sender: FDA-Public Use
  Company Number: None

PATIENT
  Age: 55 Year
  Sex: Female
  Weight: 67.131 kg

DRUGS (2)
  1. JUVEDERM [Concomitant]
  2. BOTOX [Suspect]
     Indication: SKIN COSMETIC PROCEDURE
     Dosage: NOT KNOWN TO ME
     Route: 050
     Dates: start: 20120315, end: 20120315

REACTIONS (12)
  - HEADACHE [None]
  - TOXICITY TO VARIOUS AGENTS [None]
  - NECK PAIN [None]
  - BACK PAIN [None]
  - DIARRHOEA [None]
  - WEIGHT DECREASED [None]
  - MIGRAINE [None]
  - EYELID PAIN [None]
  - MASTICATION DISORDER [None]
  - MALAISE [None]
  - FEELING ABNORMAL [None]
  - EYELID PTOSIS [None]
